FAERS Safety Report 16732722 (Version 1)
Quarter: 2019Q3

REPORT INFORMATION
  Report Type: Spontaneous
  Country: DE (occurrence: DE)
  Receive Date: 20190823
  Receipt Date: 20190823
  Transmission Date: 20191005
  Serious: Yes (Hospitalization)
  Sender: FDA-Public Use
  Company Number: DE-DRREDDYS-GER/GER/19/0112335

PATIENT
  Age: 63 Year
  Sex: Female

DRUGS (12)
  1. LAXOBERAL [Concomitant]
     Active Substance: SODIUM PICOSULFATE
     Indication: PRODUCT USED FOR UNKNOWN INDICATION
     Dosage: NK MG, 0-0-0-18, DROPLET (TROPFEN)
  2. INDACATEROL/GLYCOPYRRONIUMBROMID [Concomitant]
     Indication: PRODUCT USED FOR UNKNOWN INDICATION
     Dosage: 110|50 MICROGRAM, 1-0-0-0
  3. MIRTAZAPINE. [Concomitant]
     Active Substance: MIRTAZAPINE
     Indication: PRODUCT USED FOR UNKNOWN INDICATION
     Dosage: 15 MG, 0-0-0-1
  4. FENTANYL. [Suspect]
     Active Substance: FENTANYL
     Indication: PRODUCT USED FOR UNKNOWN INDICATION
     Dosage: 50 MICROGRAM, DAILY CHANGE, PATCH TRANSDERMAL (TGL. WECHSEL, PFLASTER TRANSDERMAL)
     Route: 062
  5. FENTANYL. [Suspect]
     Active Substance: FENTANYL
     Dosage: 25 MICROGRAM DAILY, CHANGE, PATCH TRANSDERMAL (TGL. WECHSEL, PFLASTER TRANSDERMAL)
     Route: 062
  6. ROFLUMILAST. [Concomitant]
     Active Substance: ROFLUMILAST
     Indication: PRODUCT USED FOR UNKNOWN INDICATION
     Dosage: 500 MICROGRAM, 0-0-0-1
  7. HYDROCHLOROTHIAZIDE. [Concomitant]
     Active Substance: HYDROCHLOROTHIAZIDE
     Indication: PRODUCT USED FOR UNKNOWN INDICATION
     Dosage: 25 MG, 1-0-0-0
  8. ESTRADIOL. [Concomitant]
     Active Substance: ESTRADIOL
     Indication: PRODUCT USED FOR UNKNOWN INDICATION
     Dosage: 2 MG, 1-0-0-0
  9. PANTOPRAZOLE [Concomitant]
     Active Substance: PANTOPRAZOLE
     Indication: PRODUCT USED FOR UNKNOWN INDICATION
     Dosage: 40 MG, 1-0-0-0
  10. SOLEDUM [Concomitant]
     Active Substance: EUCALYPTOL
     Indication: PRODUCT USED FOR UNKNOWN INDICATION
     Dosage: NK MG, 1-1-0-0
  11. MAGNESIUM [Concomitant]
     Active Substance: MAGNESIUM
     Indication: PRODUCT USED FOR UNKNOWN INDICATION
     Dosage: NK MG, 1-0-0-0, EFFERVESCENT TABLETS (BRAUSETABLETTEN)
  12. REKAWAN [Concomitant]
     Active Substance: POTASSIUM CHLORIDE
     Indication: PRODUCT USED FOR UNKNOWN INDICATION
     Dosage: NK MG, 1-1-1-0

REACTIONS (3)
  - Abdominal pain [Unknown]
  - Product prescribing error [Unknown]
  - Abdominal pain upper [Unknown]
